FAERS Safety Report 8499226-X (Version None)
Quarter: 2012Q2

REPORT INFORMATION
  Report Type: 
  Country: None (occurrence: None)
  Receive Date: 20120405
  Receipt Date: 20110104
  Transmission Date: 20120825
  Serious: Yes (Other)
  Sender: FDA-Public Use
  Company Number: PHHY2010US85296

PATIENT
  Age: 66 Year
  Sex: Female
  Weight: 59 kg

DRUGS (4)
  1. CALCIUM CARBONATE [Concomitant]
  2. LEVOTHYROXINE SODIUM [Concomitant]
  3. RECLAST [Suspect]
     Indication: OSTEOPOROSIS
     Dosage: 5 MG, INTRAVENOUS
     Route: 042
     Dates: start: 20090112
  4. SIMVASTATIN [Concomitant]

REACTIONS (2)
  - HYPOAESTHESIA [None]
  - ACTIVITIES OF DAILY LIVING IMPAIRED [None]
